FAERS Safety Report 5182101-6 (Version None)
Quarter: 2006Q4

REPORT INFORMATION
  Report Type: 
  Country: None (occurrence: None)
  Receive Date: 20061220
  Receipt Date: 20060512
  Transmission Date: 20070319
  Serious: No
  Sender: FDA-Public Use
  Company Number: US-GLAXOSMITHKLINE-A0605382A

PATIENT
  Age: 38 Year
  Sex: Male

DRUGS (4)
  1. COMMIT NICOTINE POLACRILEX MINT LOZENGE [Suspect]
  2. COMMIT [Suspect]
  3. NICORETTE [Suspect]
  4. NICODERM CQ [Suspect]

REACTIONS (5)
  - DRUG INEFFECTIVE [None]
  - INTENTIONAL DRUG MISUSE [None]
  - NICOTINE DEPENDENCE [None]
  - ORAL DISCOMFORT [None]
  - STRESS [None]
